FAERS Safety Report 14554994 (Version 1)
Quarter: 2018Q1

REPORT INFORMATION
  Report Type: Other
  Country: GB (occurrence: GB)
  Receive Date: 20180220
  Receipt Date: 20180220
  Transmission Date: 20180509
  Serious: Yes (Life-Threatening)
  Sender: FDA-Public Use
  Company Number: GB-GEHC-2018CSU000752

PATIENT

DRUGS (1)
  1. OMNIPAQUE [Suspect]
     Active Substance: IOHEXOL
     Indication: PRODUCT USED FOR UNKNOWN INDICATION
     Dosage: 95 ML, SINGLE
     Route: 042
     Dates: start: 20170101, end: 20170101

REACTIONS (4)
  - Malaise [Unknown]
  - Loss of consciousness [Not Recovered/Not Resolved]
  - Unresponsive to stimuli [Unknown]
  - Dermatitis allergic [Unknown]

NARRATIVE: CASE EVENT DATE: 20180131
